FAERS Safety Report 8954477 (Version 2)
Quarter: 2012Q4

REPORT INFORMATION
  Report Type: Report from Study
  Country: DE (occurrence: DE)
  Receive Date: 20121209
  Receipt Date: 20121217
  Transmission Date: 20130627
  Serious: Yes (Other)
  Sender: FDA-Public Use
  Company Number: DE-US-EMD SERONO, INC.-7178810

PATIENT
  Sex: Male
  Weight: 47 kg

DRUGS (3)
  1. SAIZEN [Suspect]
     Indication: GROWTH HORMONE DEFICIENCY
     Route: 058
  2. HYDROCORTISONE [Concomitant]
     Indication: HYPOPITUITARISM
     Route: 048
     Dates: start: 20050421
  3. L-THROXINE [Concomitant]
     Indication: HYPOPITUITARISM
     Route: 048
     Dates: start: 20050803

REACTIONS (2)
  - Blood test abnormal [Not Recovered/Not Resolved]
  - Thalassaemia beta [Not Recovered/Not Resolved]
